FAERS Safety Report 11178358 (Version 1)
Quarter: 2015Q2

REPORT INFORMATION
  Report Type: Spontaneous
  Country: US (occurrence: US)
  Receive Date: 20150610
  Receipt Date: 20150610
  Transmission Date: 20150821
  Serious: No
  Sender: FDA-Public Use
  Company Number: US-GLAXOSMITHKLINE-US2015GSK079730

PATIENT
  Sex: Male

DRUGS (4)
  1. AVODART [Suspect]
     Active Substance: DUTASTERIDE
     Indication: SKIN IRRITATION
  2. AVODART [Suspect]
     Active Substance: DUTASTERIDE
     Indication: ERYTHEMA
  3. AVODART [Suspect]
     Active Substance: DUTASTERIDE
     Indication: ALOPECIA
     Dosage: 0.5 MG, UNK
     Dates: start: 2000
  4. AVODART [Suspect]
     Active Substance: DUTASTERIDE
     Indication: POLLAKIURIA

REACTIONS (2)
  - Skin infection [Unknown]
  - Tinea infection [Unknown]
